FAERS Safety Report 15781585 (Version 2)
Quarter: 2019Q1

REPORT INFORMATION
  Report Type: Spontaneous
  Country: US (occurrence: US)
  Receive Date: 20190102
  Receipt Date: 20190116
  Transmission Date: 20190417
  Serious: No
  Sender: FDA-Public Use
  Company Number: US-TEVA-2018-US-984437

PATIENT
  Sex: Female

DRUGS (1)
  1. AMLODIPINE / VALSARTAN [Suspect]
     Active Substance: AMLODIPINE\VALSARTAN
     Indication: BLOOD PRESSURE MEASUREMENT
     Dosage: 1DF=5MG/160MG?INCREASED TO HIGHER DOSE OF 5/320 MG
     Route: 065

REACTIONS (2)
  - Blood pressure inadequately controlled [Unknown]
  - Recalled product [Unknown]
